FAERS Safety Report 7905176-7 (Version None)
Quarter: 2011Q4

REPORT INFORMATION
  Report Type: 
  Country: None (occurrence: None)
  Receive Date: 20111109
  Receipt Date: 20111101
  Transmission Date: 20120403
  Serious: Yes (Other)
  Sender: FDA-Public Use
  Company Number: US-ASTRAZENECA-2011SE66387

PATIENT
  Sex: Female

DRUGS (1)
  1. VIMOVO [Suspect]
     Route: 048

REACTIONS (3)
  - PAIN [None]
  - BLINDNESS [None]
  - PHARYNGEAL DISORDER [None]
